FAERS Safety Report 6938150-8 (Version None)
Quarter: 2010Q3

REPORT INFORMATION
  Report Type: 
  Country: None (occurrence: None)
  Receive Date: 20100824
  Receipt Date: 20100814
  Transmission Date: 20110219
  Serious: Yes (Hospitalization, Other)
  Sender: FDA-Public Use
  Company Number: US-JNJFOC-20100806379

PATIENT
  Sex: Male
  Weight: 95.26 kg

DRUGS (1)
  1. DURAGESIC-100 [Suspect]
     Indication: ANALGESIC THERAPY
     Dosage: 100 UG/HR+100 UG/HR
     Route: 062

REACTIONS (12)
  - APPLICATION SITE WARMTH [None]
  - ARTHRALGIA [None]
  - CHEST DISCOMFORT [None]
  - COMA [None]
  - DYSPNOEA [None]
  - FALL [None]
  - LETHARGY [None]
  - MUSCLE SPASMS [None]
  - NAUSEA [None]
  - PAIN [None]
  - PRODUCT QUALITY ISSUE [None]
  - WRONG TECHNIQUE IN DRUG USAGE PROCESS [None]
